FAERS Safety Report 5061201-5 (Version None)
Quarter: 2006Q3

REPORT INFORMATION
  Report Type: 
  Country: None (occurrence: None)
  Receive Date: 20060725
  Receipt Date: 20060713
  Transmission Date: 20061208
  Serious: Yes (Hospitalization)
  Sender: FDA-Public Use
  Company Number: NL-ROCHE-455339

PATIENT
  Age: 63 Year
  Sex: Male

DRUGS (3)
  1. MYCOPHENOLATE MOFETIL [Suspect]
     Dosage: DOSING AMOUNT UNKNOWN
     Route: 048
     Dates: start: 20050915
  2. BLINDED TACROLIMUS [Suspect]
     Route: 048
     Dates: start: 20050915
  3. PREDNISOLONE [Suspect]
     Route: 048
     Dates: start: 20050915

REACTIONS (1)
  - BENIGN PROSTATIC HYPERPLASIA [None]
